FAERS Safety Report 21314343 (Version 1)
Quarter: 2022Q3

REPORT INFORMATION
  Report Type: Spontaneous
  Country: US (occurrence: None)
  Receive Date: 20220909
  Receipt Date: 20220909
  Transmission Date: 20221026
  Serious: No
  Sender: FDA-Public Use
  Company Number: US-ARIS GLOBAL-202110-1794

PATIENT
  Sex: Female

DRUGS (24)
  1. OXERVATE [Suspect]
     Active Substance: CENEGERMIN-BKBJ
     Indication: Neurotrophic keratopathy
     Route: 047
     Dates: start: 20210927
  2. TYLENOL [Concomitant]
     Active Substance: ACETAMINOPHEN
  3. OXYCODONE HYDROCHLORIDE [Concomitant]
     Active Substance: OXYCODONE HYDROCHLORIDE
  4. VITAMIN C [Concomitant]
     Active Substance: ASCORBIC ACID
  5. FERROUS SULFATE [Concomitant]
     Active Substance: FERROUS SULFATE
     Dosage: 324(65) MG TABLET DELAYED RELEASE
  6. CALCIUM\CHOLECALCIFEROL [Concomitant]
     Active Substance: CALCIUM\CHOLECALCIFEROL
     Dosage: 600 MG-12.5 TABLET, EXTENDED RELEASE
  7. PROBIOTIC 10B CELL [Concomitant]
  8. VITAMIN D3 [Concomitant]
     Active Substance: CHOLECALCIFEROL
  9. CRANBERRY [Concomitant]
     Active Substance: CRANBERRY
  10. PSYLLIUM FIBER [Concomitant]
  11. ALBUMIN HUMAN [Concomitant]
     Active Substance: ALBUMIN HUMAN
     Dosage: 25 % IV
  12. OFLOXACIN [Concomitant]
     Active Substance: OFLOXACIN
  13. BUSPIRONE HYDROCHLORIDE [Concomitant]
     Active Substance: BUSPIRONE HYDROCHLORIDE
  14. AMLODIPINE BESYLATE [Concomitant]
     Active Substance: AMLODIPINE BESYLATE
  15. CARVEDILOL [Concomitant]
     Active Substance: CARVEDILOL
  16. DICYCLOMINE HYDROCHLORIDE [Concomitant]
     Active Substance: DICYCLOMINE HYDROCHLORIDE
  17. ELIQUIS [Concomitant]
     Active Substance: APIXABAN
  18. FUROSEMIDE [Concomitant]
     Active Substance: FUROSEMIDE
  19. DOXYCYCLINE HYCLATE [Concomitant]
     Active Substance: DOXYCYCLINE HYCLATE
  20. PANTOPRAZOLE SODIUM [Concomitant]
     Active Substance: PANTOPRAZOLE SODIUM
     Dosage: DELAYED RELEASE
  21. ATORVASTATIN CALCIUM [Concomitant]
     Active Substance: ATORVASTATIN CALCIUM
  22. LEVOTHYROXINE [Concomitant]
     Active Substance: LEVOTHYROXINE
  23. ACYCLOVIR [Concomitant]
     Active Substance: ACYCLOVIR
  24. GABAPENTIN [Concomitant]
     Active Substance: GABAPENTIN

REACTIONS (5)
  - Eye discharge [Unknown]
  - Erythema of eyelid [Unknown]
  - Eye pain [Unknown]
  - Periorbital pain [Unknown]
  - Intercepted medication error [Unknown]
